FAERS Safety Report 4303849-9 (Version None)
Quarter: 2004Q1

REPORT INFORMATION
  Report Type: 
  Country: None (occurrence: None)
  Receive Date: 20040224
  Receipt Date: 20040224
  Transmission Date: 20041129
  Serious: Yes (Other)
  Sender: FDA-Public Use
  Company Number: None

PATIENT
  Age: 66 Year
  Sex: Female

DRUGS (1)
  1. CITANEST PLAIN [Suspect]

REACTIONS (3)
  - AGEUSIA [None]
  - BURNING SENSATION [None]
  - PARAESTHESIA ORAL [None]
